FAERS Safety Report 5254622-9 (Version None)
Quarter: 2007Q1

REPORT INFORMATION
  Report Type: 
  Country: None (occurrence: None)
  Receive Date: 20070302
  Receipt Date: 20070220
  Transmission Date: 20070707
  Serious: Yes (Other)
  Sender: FDA-Public Use
  Company Number: AU-PFIZER INC-2007014476

PATIENT
  Sex: Female

DRUGS (6)
  1. SILDENAFIL (PAH) [Suspect]
     Indication: PULMONARY HYPERTENSION
  2. IRBESARTAN [Concomitant]
  3. BUMETANIDE [Concomitant]
  4. CALTRATE + D [Concomitant]
  5. MAGNESIUM [Concomitant]
  6. SYMBICORT [Concomitant]

REACTIONS (8)
  - BLOOD ALBUMIN DECREASED [None]
  - EAR PAIN [None]
  - OEDEMA PERIPHERAL [None]
  - ORTHOSTATIC HYPOTENSION [None]
  - PITTING OEDEMA [None]
  - PNEUMOCOCCAL BACTERAEMIA [None]
  - PYREXIA [None]
  - VOMITING [None]
